FAERS Safety Report 7473558-6 (Version None)
Quarter: 2011Q2

REPORT INFORMATION
  Report Type: 
  Country: None (occurrence: None)
  Receive Date: 20110511
  Receipt Date: 20110506
  Transmission Date: 20111010
  Serious: Yes (Hospitalization)
  Sender: FDA-Public Use
  Company Number: FR-MERCK-1104FRA00087

PATIENT
  Age: 71 Year
  Sex: Male
  Weight: 59 kg

DRUGS (6)
  1. FLUINDIONE [Concomitant]
     Route: 065
     Dates: end: 20110110
  2. METFORMIN [Concomitant]
     Indication: TYPE 2 DIABETES MELLITUS
     Route: 048
     Dates: end: 20100101
  3. PERINDOPRIL ARGININE [Concomitant]
     Route: 048
     Dates: end: 20110110
  4. METFORMIN [Concomitant]
     Route: 048
     Dates: start: 20100101, end: 20110314
  5. JANUVIA [Suspect]
     Indication: TYPE 2 DIABETES MELLITUS
     Route: 048
     Dates: start: 20091026, end: 20110314
  6. FUROSEMIDE [Concomitant]
     Route: 065
     Dates: end: 20110110

REACTIONS (1)
  - CARDIAC FAILURE [None]
